FAERS Safety Report 10542749 (Version 1)
Quarter: 2014Q4

REPORT INFORMATION
  Report Type: Spontaneous
  Country: US (occurrence: None)
  Receive Date: 20141024
  Receipt Date: 20141024
  Transmission Date: 20150529
  Serious: Yes (Other)
  Sender: FDA-Public Use
  Company Number: None

PATIENT
  Age: 44 Year
  Sex: Female
  Weight: 56.7 kg

DRUGS (2)
  1. CIPRO [Suspect]
     Active Substance: CIPROFLOXACIN HYDROCHLORIDE
     Indication: ABSCESS DRAINAGE
     Dosage: 1 PILL, TWICE DAILY, TAKEN BY MOUTH
     Route: 048
     Dates: start: 20141009, end: 20141019
  2. CIPRO [Suspect]
     Active Substance: CIPROFLOXACIN HYDROCHLORIDE
     Indication: INFECTION PROPHYLAXIS
     Dosage: 1 PILL, TWICE DAILY, TAKEN BY MOUTH
     Route: 048
     Dates: start: 20141009, end: 20141019

REACTIONS (11)
  - Pain in extremity [None]
  - Neck pain [None]
  - Disturbance in attention [None]
  - Apathy [None]
  - Headache [None]
  - Blepharospasm [None]
  - Gastrointestinal disorder [None]
  - Arthralgia [None]
  - Gait disturbance [None]
  - Eye irritation [None]
  - Crying [None]

NARRATIVE: CASE EVENT DATE: 20141020
